FAERS Safety Report 20706257 (Version 1)
Quarter: 2022Q2

REPORT INFORMATION
  Report Type: Spontaneous
  Country: US (occurrence: US)
  Receive Date: 20220413
  Receipt Date: 20220413
  Transmission Date: 20220720
  Serious: No
  Sender: FDA-Public Use
  Company Number: US-SCILEX PHARMACEUTICALS INC.-2021SCX00030

PATIENT
  Age: 72 Year
  Sex: Female
  Weight: 56.699 kg

DRUGS (3)
  1. ZTLIDO [Suspect]
     Active Substance: LIDOCAINE
     Indication: Back pain
     Dosage: APPLY 1 PATCH 1X/DAY FOR 12-24 HOURS
     Route: 061
     Dates: start: 20210719, end: 202107
  2. ZTLIDO [Suspect]
     Active Substance: LIDOCAINE
     Dosage: APPLY 1 PATCH 1X/DAY FOR 12-24 HOURS
     Route: 061
     Dates: start: 20210816
  3. HYDROCODONE [Concomitant]
     Active Substance: HYDROCODONE
     Dosage: UNK
     Dates: start: 20210719

REACTIONS (4)
  - Drug ineffective for unapproved indication [Recovered/Resolved]
  - Incorrect product administration duration [Recovered/Resolved]
  - Device material issue [Recovered/Resolved]
  - Off label use [Not Recovered/Not Resolved]

NARRATIVE: CASE EVENT DATE: 20210701
